FAERS Safety Report 9244715 (Version 1)
Quarter: 2013Q1

REPORT INFORMATION
  Report Type: Spontaneous
  Country: US (occurrence: None)
  Receive Date: 20121123
  Receipt Date: 20121123
  Transmission Date: 20140127
  Serious: No
  Sender: FDA-Public Use
  Company Number: 357756

PATIENT
  Sex: Female

DRUGS (1)
  1. VICTOZA (LIRAGLUTIDE) SOLUTION FOR INJECTION, 6MG/ML [Suspect]
     Indication: PRODUCT USED FOR UNKNOWN INDICATION

REACTIONS (5)
  - Back pain [None]
  - Dyspepsia [None]
  - Abdominal pain upper [None]
  - Blood glucose increased [None]
  - Diarrhoea [None]
